FAERS Safety Report 13047905 (Version 2)
Quarter: 2017Q1

REPORT INFORMATION
  Report Type: Report from Study
  Country: None (occurrence: DE)
  Receive Date: 20161220
  Receipt Date: 20170131
  Transmission Date: 20170428
  Serious: Yes (Hospitalization)
  Sender: FDA-Public Use
  Company Number: DE-ABBVIE-16K-062-1811318-00

PATIENT
  Sex: Male

DRUGS (4)
  1. PANTOPRAZOL [Concomitant]
     Active Substance: PANTOPRAZOLE SODIUM
     Indication: PRODUCT USED FOR UNKNOWN INDICATION
  2. HUMIRA [Suspect]
     Active Substance: ADALIMUMAB
     Indication: CROHN^S DISEASE
     Route: 058
     Dates: start: 20160603, end: 20170106
  3. ORTOTON [Concomitant]
     Indication: PRODUCT USED FOR UNKNOWN INDICATION
  4. TRAMAL [Concomitant]
     Active Substance: TRAMADOL
     Indication: PRODUCT USED FOR UNKNOWN INDICATION

REACTIONS (4)
  - Postoperative wound complication [Recovering/Resolving]
  - Hypoaesthesia [Recovering/Resolving]
  - Intervertebral disc protrusion [Recovering/Resolving]
  - Osteoporosis [Recovering/Resolving]

NARRATIVE: CASE EVENT DATE: 2016
